FAERS Safety Report 22074331 (Version 1)
Quarter: 2023Q1

REPORT INFORMATION
  Report Type: Spontaneous
  Country: US (occurrence: None)
  Receive Date: 20230308
  Receipt Date: 20230308
  Transmission Date: 20230417
  Serious: Yes (unspecified)
  Sender: FDA-Public Use
  Company Number: None

PATIENT
  Age: 51 Year
  Sex: Female
  Weight: 83.25 kg

DRUGS (10)
  1. PAXLOVID [Suspect]
     Active Substance: NIRMATRELVIR\RITONAVIR
     Indication: COVID-19
     Dosage: OTHER QUANTITY : 3 TABLET(S);?FREQUENCY : TWICE A DAY;?
     Route: 048
     Dates: start: 20230303, end: 20230308
  2. Walgreens severe cold and flu [Concomitant]
  3. Walgreens mucus relief ER [Concomitant]
  4. VITAMINS [Concomitant]
     Active Substance: VITAMINS
  5. VITAMIN B12 [Concomitant]
     Active Substance: CYANOCOBALAMIN
  6. MAGNESIUM GLYCINATE [Concomitant]
     Active Substance: MAGNESIUM GLYCINATE
  7. UBIQUINOL [Concomitant]
     Active Substance: UBIQUINOL
  8. ACETYLCARNITINE [Concomitant]
     Active Substance: ACETYLCARNITINE
  9. alpha lipoid acid [Concomitant]
  10. VITAMIN C [Concomitant]
     Active Substance: ASCORBIC ACID

REACTIONS (5)
  - Ocular hyperaemia [None]
  - Eye irritation [None]
  - Dry eye [None]
  - Dry mouth [None]
  - Product communication issue [None]

NARRATIVE: CASE EVENT DATE: 20230306
